FAERS Safety Report 7383555-7 (Version None)
Quarter: 2011Q1

REPORT INFORMATION
  Report Type: 
  Country: None (occurrence: None)
  Receive Date: 20110325
  Receipt Date: 20110325
  Transmission Date: 20110831
  Serious: No
  Sender: FDA-Public Use
  Company Number: None

PATIENT
  Age: 69 Year
  Sex: Male
  Weight: 74.8435 kg

DRUGS (2)
  1. ZICAM NASAL GEL EXTREME CONGESTION RELIEF 2008 DEVELOPED AND DISTRIBUT [Suspect]
     Indication: SINUS CONGESTION
     Dosage: NOT ON LABEL INHAL
     Route: 055
     Dates: start: 20090101, end: 20090401
  2. ZICAM NASAL GEL EXTREME CONGESTION RELIEF 2008 DEVELOPED AND DISTRIBUT [Suspect]
     Indication: NASAL CONGESTION
     Dosage: NOT ON LABEL INHAL
     Route: 055
     Dates: start: 20090101, end: 20090401

REACTIONS (1)
  - HYPOSMIA [None]
